FAERS Safety Report 23476341 (Version 1)
Quarter: 2024Q1

REPORT INFORMATION
  Report Type: Report from Study
  Country: US (occurrence: US)
  Receive Date: 20240204
  Receipt Date: 20240204
  Transmission Date: 20240409
  Serious: No
  Sender: FDA-Public Use
  Company Number: US-EXELIXIS-CABO-23062832

PATIENT
  Sex: Male

DRUGS (1)
  1. CABOMETYX [Suspect]
     Active Substance: CABOZANTINIB S-MALATE
     Indication: Renal cancer
     Dosage: 60 MG, QD
     Route: 048

REACTIONS (9)
  - Gingival pain [Unknown]
  - Oral pain [Unknown]
  - Skin ulcer [Unknown]
  - Blood pressure decreased [Unknown]
  - Abscess limb [Unknown]
  - Dry skin [Unknown]
  - Weight decreased [Unknown]
  - Rash [Unknown]
  - Skin infection [Unknown]
